FAERS Safety Report 7355727-9 (Version None)
Quarter: 2011Q1

REPORT INFORMATION
  Report Type: 
  Country: None (occurrence: None)
  Receive Date: 20110316
  Receipt Date: 20110307
  Transmission Date: 20110831
  Serious: Yes (Hospitalization)
  Sender: FDA-Public Use
  Company Number: US-ASTRAZENECA-2011SE12398

PATIENT
  Age: 61 Year
  Sex: Male

DRUGS (1)
  1. CRESTOR [Suspect]
     Indication: ARTERIOSCLEROSIS
     Route: 048
     Dates: start: 19981201

REACTIONS (6)
  - MIGRAINE [None]
  - ROAD TRAFFIC ACCIDENT [None]
  - BACK INJURY [None]
  - TYPE 2 DIABETES MELLITUS [None]
  - CERVICAL SPINAL STENOSIS [None]
  - ARTHRITIS [None]
